FAERS Safety Report 7362576-4 (Version None)
Quarter: 2011Q1

REPORT INFORMATION
  Report Type: 
  Country: None (occurrence: None)
  Receive Date: 20110320
  Receipt Date: 20110223
  Transmission Date: 20110831
  Serious: Yes (Other)
  Sender: FDA-Public Use
  Company Number: US-BAYER-201020462NA

PATIENT
  Sex: Female
  Weight: 77.098 kg

DRUGS (8)
  1. YASMIN [Suspect]
     Indication: ORAL CONTRACEPTION
     Route: 048
  2. MORPHINE [Concomitant]
     Dosage: UNK
     Dates: start: 20051101
  3. BENADRYL [Concomitant]
     Dosage: UNK
     Dates: start: 20051101
  4. CIPRO [Concomitant]
     Dosage: 500 MG, UNK
     Route: 048
     Dates: start: 20051101
  5. YAZ [Suspect]
     Indication: PRODUCT USED FOR UNKNOWN INDICATION
     Route: 048
  6. EFFEXOR [Concomitant]
  7. OXYCODONE [Concomitant]
     Route: 048
  8. TORADOL [Concomitant]
     Dosage: UNK
     Dates: start: 20051101

REACTIONS (6)
  - GASTROINTESTINAL HAEMORRHAGE [None]
  - CHOLECYSTITIS CHRONIC [None]
  - RECTAL HAEMORRHAGE [None]
  - HIATUS HERNIA [None]
  - BILIARY DYSKINESIA [None]
  - GASTRITIS [None]
